FAERS Safety Report 26201498 (Version 1)
Quarter: 2025Q4

REPORT INFORMATION
  Report Type: Spontaneous
  Country: US (occurrence: US)
  Receive Date: 20251226
  Receipt Date: 20251226
  Transmission Date: 20260117
  Serious: Yes (Life-Threatening, Hospitalization)
  Sender: MICRO LABS LIMITED
  Company Number: US-MLMSERVICE-20251210-PI745182-00217-1

PATIENT
  Age: 69 Year
  Sex: Female

DRUGS (1)
  1. METFORMIN [Suspect]
     Active Substance: METFORMIN HYDROCHLORIDE
     Indication: Type 2 diabetes mellitus

REACTIONS (3)
  - Acute kidney injury [Recovering/Resolving]
  - Lactic acidosis [Recovering/Resolving]
  - Hypothermia [Unknown]
